FAERS Safety Report 5259545-7 (Version None)
Quarter: 2007Q1

REPORT INFORMATION
  Report Type: 
  Country: None (occurrence: None)
  Receive Date: 20070307
  Receipt Date: 20070307
  Transmission Date: 20070707
  Serious: Yes (Hospitalization)
  Sender: FDA-Public Use
  Company Number: None

PATIENT
  Sex: Male
  Weight: 9.2 kg

DRUGS (1)
  1. PROTEIN C CONCENTRATE [Suspect]
     Indication: PROTEIN C DEFICIENCY
     Dosage: 1066 UNITS DAILY IV
     Route: 042

REACTIONS (4)
  - ARTERIAL THROMBOSIS LIMB [None]
  - DEEP VEIN THROMBOSIS [None]
  - PERIPHERAL COLDNESS [None]
  - SKIN DISCOLOURATION [None]
